FAERS Safety Report 4727156-5 (Version None)
Quarter: 2005Q3

REPORT INFORMATION
  Report Type: 
  Country: None (occurrence: None)
  Receive Date: 20050726
  Receipt Date: 20050715
  Transmission Date: 20060218
  Serious: Yes (Other)
  Sender: FDA-Public Use
  Company Number: KII-2005-0017620

PATIENT
  Age: 33 Year
  Sex: Male

DRUGS (5)
  1. OXYCONTIN [Suspect]
     Indication: PAIN
     Dosage: ORAL
     Route: 048
  2. FENTANYL (FENTANYL) TRANSDERMAL PATCH [Suspect]
     Dosage: ORAL
     Route: 048
  3. ACETAMINOPHEN AND HYDROCODONE BITARTRATE [Suspect]
     Indication: HIP FRACTURE
     Dosage: ORAL
     Route: 048
  4. BENZODIAZEPAM DERIVATIVES () [Suspect]
  5. ACETYLSALICYLIC ACID SRT [Suspect]

REACTIONS (5)
  - COMA [None]
  - DRUG ABUSER [None]
  - INTENTIONAL MISUSE [None]
  - MULTIPLE DRUG OVERDOSE [None]
  - VOMITING [None]
